FAERS Safety Report 13345084 (Version 2)
Quarter: 2017Q1

REPORT INFORMATION
  Report Type: Spontaneous
  Country: US (occurrence: US)
  Receive Date: 20170317
  Receipt Date: 20170331
  Transmission Date: 20170428
  Serious: No
  Sender: FDA-Public Use
  Company Number: US-PFIZER INC-2017109227

PATIENT
  Sex: Female

DRUGS (1)
  1. XELJANZ [Suspect]
     Active Substance: TOFACITINIB CITRATE
     Dosage: 5 MG, UNK

REACTIONS (6)
  - Upper respiratory tract infection [Unknown]
  - Weight increased [Unknown]
  - Grip strength decreased [Unknown]
  - Dry skin [Unknown]
  - Peripheral swelling [Unknown]
  - Synovitis [Unknown]
